FAERS Safety Report 8791182 (Version 1)
Quarter: 2012Q4

REPORT INFORMATION
  Report Type: Spontaneous
  Country: US (occurrence: None)
  Receive Date: 20120914
  Receipt Date: 20120914
  Transmission Date: 20130627
  Serious: Yes (Hospitalization)
  Sender: FDA-Public Use
  Company Number: None

PATIENT
  Age: 67 Year
  Sex: Female
  Weight: 79.54 kg

DRUGS (12)
  1. DILANTIN [Suspect]
     Indication: CONVULSION DISORDER
     Dosage: 300MG  QAM  PO   CHRONIC
     Route: 048
  2. ALLOPURINOL [Suspect]
     Indication: GOUT
     Dosage: 300MG DAILY PO RECENT
     Route: 048
  3. NORVASC [Suspect]
     Indication: HYPERTENSION
     Dosage: 5MG DAILY PO CHRONIC
     Route: 048
  4. NEXIUM [Concomitant]
  5. VIT D [Concomitant]
  6. SYNTHROID [Concomitant]
  7. PHENOBARBITAL [Concomitant]
  8. TYLENOL [Concomitant]
  9. FERROUS SULFATE [Concomitant]
  10. CELEBREX [Concomitant]
  11. MICARDIS HCT [Concomitant]
  12. FOLIC ACID [Concomitant]

REACTIONS (5)
  - Toxicity to various agents [None]
  - Drug interaction [None]
  - Lethargy [None]
  - Somnolence [None]
  - Ataxia [None]
